FAERS Safety Report 8027258-4 (Version None)
Quarter: 2012Q1

REPORT INFORMATION
  Report Type: 
  Country: None (occurrence: None)
  Receive Date: 20120106
  Receipt Date: 20120104
  Transmission Date: 20120608
  Serious: Yes (Death, Hospitalization)
  Sender: FDA-Public Use
  Company Number: AU-B.I. PHARMACEUTICALS,INC./RIDGEFIELD-2011-AU-02200AU

PATIENT
  Sex: Male

DRUGS (2)
  1. PRADAXA [Suspect]
     Indication: ATRIAL FIBRILLATION
     Dosage: 300 MG
  2. NON STEROIDAL ANTIINFLAMMATORIES [Concomitant]
     Indication: PAIN

REACTIONS (2)
  - PERICARDIAL HAEMORRHAGE [None]
  - CARDIAC TAMPONADE [None]
